FAERS Safety Report 8734279 (Version 2)
Quarter: 2015Q2

REPORT INFORMATION
  Report Type: Spontaneous
  Country: AT (occurrence: AT)
  Receive Date: 20120821
  Receipt Date: 20150527
  Transmission Date: 20150821
  Serious: Yes (Hospitalization, Other)
  Sender: FDA-Public Use
  Company Number: AT-WATSON-2012-14226

PATIENT
  Age: 22 Year
  Sex: Female
  Weight: 46 kg

DRUGS (1)
  1. FUROSEMIDE (UNKNOWN) [Suspect]
     Active Substance: FUROSEMIDE
     Indication: MUSCLE BUILDING THERAPY
     Dosage: 250 MG, DAILY
     Route: 065

REACTIONS (2)
  - Drug abuse [Unknown]
  - Hypokalaemia [Recovered/Resolved]
